FAERS Safety Report 7126383-X (Version None)
Quarter: 2010Q4

REPORT INFORMATION
  Report Type: 
  Country: None (occurrence: None)
  Receive Date: 20101129
  Receipt Date: 20101122
  Transmission Date: 20110411
  Serious: Yes (Other)
  Sender: FDA-Public Use
  Company Number: US-US-EMD SERONO, INC.-233547J09USA

PATIENT
  Sex: Female

DRUGS (3)
  1. REBIF [Suspect]
     Indication: MULTIPLE SCLEROSIS
     Route: 058
     Dates: start: 20060701
  2. SYMBICORT [Concomitant]
     Indication: ASTHMA
     Route: 055
  3. UNSPECIFIED MEDICATION [Concomitant]
     Indication: RHEUMATOID ARTHRITIS

REACTIONS (4)
  - BALANCE DISORDER [None]
  - FALL [None]
  - FATIGUE [None]
  - WRIST FRACTURE [None]
